FAERS Safety Report 8062976-3 (Version None)
Quarter: 2012Q1

REPORT INFORMATION
  Report Type: 
  Country: None (occurrence: None)
  Receive Date: 20120123
  Receipt Date: 20120111
  Transmission Date: 20120608
  Serious: Yes (Congenital Anomaly)
  Sender: FDA-Public Use
  Company Number: TR-ROCHE-1032071

PATIENT
  Sex: Male
  Weight: 3.995 kg

DRUGS (3)
  1. LUCENTIS [Suspect]
     Indication: CHOROIDAL NEOVASCULARISATION
     Route: 064
     Dates: start: 20100721
  2. LUCENTIS [Suspect]
     Route: 064
     Dates: start: 20100828
  3. LUCENTIS [Suspect]
     Route: 064
     Dates: start: 20101008

REACTIONS (2)
  - FOETAL EXPOSURE DURING PREGNANCY [None]
  - VENTRICULAR SEPTAL DEFECT [None]
